FAERS Safety Report 20804404 (Version 1)
Quarter: 2022Q2

REPORT INFORMATION
  Report Type: Spontaneous
  Country: FR (occurrence: FR)
  Receive Date: 20220509
  Receipt Date: 20220509
  Transmission Date: 20220720
  Serious: Yes (Hospitalization, Other)
  Sender: FDA-Public Use
  Company Number: None

PATIENT
  Age: 69 Year
  Sex: Female
  Weight: 67 kg

DRUGS (7)
  1. LOVENOX [Suspect]
     Active Substance: ENOXAPARIN SODIUM
     Indication: Thrombosis prophylaxis
     Dosage: 4000 IU, QD, 1 INJECTION PER DAY, IN THE EVENING
     Route: 058
  2. SULFAMETHOXAZOLE\TRIMETHOPRIM [Suspect]
     Active Substance: SULFAMETHOXAZOLE\TRIMETHOPRIM
     Indication: Infection prophylaxis
     Dosage: 1 DF, QOD, 1 TABLET IN THE MORNING ON MONDAY, WEDNESDAY AND FRIDAY
     Route: 048
     Dates: start: 20220310, end: 20220326
  3. VALACYCLOVIR HYDROCHLORIDE [Suspect]
     Active Substance: VALACYCLOVIR HYDROCHLORIDE
     Indication: Infection prophylaxis
     Dosage: 1000 MG, QD, 2 TABLETS PER DAY (MORNING AND EVENING) EVERY DAY
     Route: 048
     Dates: start: 20220310
  4. TAFASITAMAB [Suspect]
     Active Substance: TAFASITAMAB
     Indication: B-cell lymphoma stage IV
     Dosage: 828 MG, QW
     Route: 042
     Dates: start: 20220310
  5. LENALIDOMIDE [Suspect]
     Active Substance: LENALIDOMIDE
     Indication: B-cell lymphoma stage IV
     Dosage: 25 MG, J 21/28J
     Route: 048
     Dates: start: 20220306, end: 20220326
  6. FILGRASTIM [Suspect]
     Active Substance: FILGRASTIM
     Indication: Chemotherapy toxicity attenuation
     Dosage: 30 10*6.IU, QD, 30 MU DAILY IF NEEDED (30 MU = 300 ?G FILGRASTIM)
     Route: 042
     Dates: start: 20220310
  7. ERYTHROPOIETIN [Suspect]
     Active Substance: ERYTHROPOIETIN
     Indication: Chemotherapy toxicity attenuation
     Dosage: 30000 DF, QW
     Route: 058
     Dates: start: 20220310

REACTIONS (1)
  - Toxic skin eruption [Recovering/Resolving]

NARRATIVE: CASE EVENT DATE: 20220326
